FAERS Safety Report 24262268 (Version 1)
Quarter: 2024Q3

REPORT INFORMATION
  Report Type: Spontaneous
  Country: ES (occurrence: ES)
  Receive Date: 20240829
  Receipt Date: 20240829
  Transmission Date: 20241016
  Serious: Yes (Death)
  Sender: STRIDES
  Company Number: ES-STRIDES ARCOLAB LIMITED-2024SP010750

PATIENT

DRUGS (1)
  1. ACETAZOLAMIDE [Suspect]
     Active Substance: ACETAZOLAMIDE
     Indication: Glaucoma
     Dosage: 250 MILLIGRAM, SINGLE
     Route: 048

REACTIONS (1)
  - Pulmonary oedema [Fatal]
